FAERS Safety Report 15699637 (Version 2)
Quarter: 2019Q1

REPORT INFORMATION
  Report Type: Spontaneous
  Country: US (occurrence: US)
  Receive Date: 20181207
  Receipt Date: 20190102
  Transmission Date: 20190417
  Serious: Yes (Hospitalization)
  Sender: FDA-Public Use
  Company Number: US-TARO-2018TAR00826

PATIENT
  Age: 29 Year
  Sex: Female

DRUGS (2)
  1. PRENATAL VITAMINS [Concomitant]
     Active Substance: VITAMINS
     Dosage: UNK
     Route: 048
     Dates: start: 201806
  2. TERCONAZOLE VAGINAL CREAM 0.4% [Suspect]
     Active Substance: TERCONAZOLE
     Indication: FUNGAL INFECTION
     Dosage: UNK
     Dates: start: 20181114, end: 2018

REACTIONS (2)
  - Hospitalisation [Recovered/Resolved]
  - Exposure during pregnancy [Unknown]

NARRATIVE: CASE EVENT DATE: 201811
